FAERS Safety Report 13121649 (Version 1)
Quarter: 2017Q1

REPORT INFORMATION
  Report Type: Spontaneous
  Country: US (occurrence: US)
  Receive Date: 20170116
  Receipt Date: 20170116
  Transmission Date: 20170428
  Serious: No
  Sender: FDA-Public Use
  Company Number: None

PATIENT
  Age: 68 Year
  Sex: Female

DRUGS (1)
  1. DAPTOMYCIN 500 MG FRESENIUS KABI USA [Suspect]
     Active Substance: DAPTOMYCIN
     Indication: BACTERAEMIA
     Dosage: Q24H
     Route: 041
     Dates: start: 20170103, end: 20170108

REACTIONS (7)
  - Myalgia [None]
  - Laboratory test abnormal [None]
  - Refusal of treatment by patient [None]
  - Local swelling [None]
  - Peripheral swelling [None]
  - Therapy change [None]
  - Dyspnoea [None]

NARRATIVE: CASE EVENT DATE: 20170109
